FAERS Safety Report 13677869 (Version 3)
Quarter: 2017Q4

REPORT INFORMATION
  Report Type: Spontaneous
  Country: US (occurrence: US)
  Receive Date: 20170622
  Receipt Date: 20171006
  Transmission Date: 20180320
  Serious: Yes (Hospitalization)
  Sender: FDA-Public Use
  Company Number: US-ASTRAZENECA-2017SE63644

PATIENT
  Age: 87 Year
  Sex: Female

DRUGS (2)
  1. SEROQUEL [Suspect]
     Active Substance: QUETIAPINE FUMARATE
     Indication: SLEEP DISORDER
     Dosage: INITIAL DOSE WAS 100 MG, THEN 50 MG AND THEN 25 MG
     Route: 048
     Dates: start: 201607, end: 201612
  2. SEROQUEL [Suspect]
     Active Substance: QUETIAPINE FUMARATE
     Indication: SLEEP DISORDER
     Route: 048
     Dates: start: 201705

REACTIONS (15)
  - Dementia [Unknown]
  - Respiratory disorder [Unknown]
  - Pneumonia [Unknown]
  - Slow speech [Unknown]
  - Dysphonia [Unknown]
  - Memory impairment [Unknown]
  - Swelling [Unknown]
  - Dysphagia [Unknown]
  - Cardiac disorder [Unknown]
  - Product use in unapproved indication [Unknown]
  - Mental impairment [Unknown]
  - Back pain [Unknown]
  - Coronary artery stenosis [Not Recovered/Not Resolved]
  - Swelling face [Unknown]
  - Off label use [Unknown]

NARRATIVE: CASE EVENT DATE: 2016
